FAERS Safety Report 4495842-0 (Version None)
Quarter: 2004Q4

REPORT INFORMATION
  Report Type: 
  Country: None (occurrence: None)
  Receive Date: 20041108
  Receipt Date: 20041027
  Transmission Date: 20050328
  Serious: Yes (Other)
  Sender: FDA-Public Use
  Company Number: BE-GLAXOSMITHKLINE-B0350497A

PATIENT

DRUGS (1)
  1. AUGMENTIN '125' [Suspect]
     Indication: LOCALISED INFECTION
     Route: 065
     Dates: start: 20040101, end: 20040101

REACTIONS (3)
  - BLOOD BILIRUBIN INCREASED [None]
  - HEPATITIS CHOLESTATIC [None]
  - MALAISE [None]
